FAERS Safety Report 4336298-8 (Version None)
Quarter: 2004Q2

REPORT INFORMATION
  Report Type: 
  Country: None (occurrence: None)
  Receive Date: 20040407
  Receipt Date: 20040318
  Transmission Date: 20050107
  Serious: Yes (Hospitalization)
  Sender: FDA-Public Use
  Company Number: USA020819836

PATIENT
  Age: 91 Year
  Sex: Female
  Weight: 48 kg

DRUGS (1)
  1. HUMALOG [Suspect]
     Indication: DIABETES MELLITUS
     Dosage: 32 U DAY
     Dates: start: 20000101

REACTIONS (8)
  - ARRHYTHMIA [None]
  - ASTHENIA [None]
  - BLINDNESS [None]
  - BLOOD GLUCOSE INCREASED [None]
  - FALL [None]
  - HIP FRACTURE [None]
  - HYPOACUSIS [None]
  - PNEUMONIA [None]
